FAERS Safety Report 17823751 (Version 2)
Quarter: 2020Q2

REPORT INFORMATION
  Report Type: Spontaneous
  Country: US (occurrence: US)
  Receive Date: 20200526
  Receipt Date: 20200610
  Transmission Date: 20200714
  Serious: Yes (Other)
  Sender: FDA-Public Use
  Company Number: US-PFIZER INC-2020206384

PATIENT
  Age: 85 Year
  Sex: Female

DRUGS (3)
  1. XGEVA [Concomitant]
     Active Substance: DENOSUMAB
     Dosage: 120 MG
  2. FASLODEX [Concomitant]
     Active Substance: FULVESTRANT
     Dosage: 500 MG
  3. IBRANCE [Suspect]
     Active Substance: PALBOCICLIB
     Indication: BREAST CANCER FEMALE
     Dosage: 100 MG, CYCLIC (DAYS 1-21 EVERY 28DAYS/DAYS 1-21, THEN 7 DAYS OFF)
     Route: 048

REACTIONS (27)
  - Cervical spinal stenosis [Unknown]
  - Hypothyroidism [Unknown]
  - Plasma cell myeloma [Unknown]
  - Neoplasm progression [Unknown]
  - Rotator cuff syndrome [Unknown]
  - Back pain [Unknown]
  - Tricuspid valve incompetence [Unknown]
  - Blood glucose abnormal [Unknown]
  - Obesity [Unknown]
  - Gastrooesophageal reflux disease [Unknown]
  - Second primary malignancy [Unknown]
  - Ovarian disorder [Unknown]
  - Atrophic vulvovaginitis [Unknown]
  - Rosacea [Unknown]
  - Hyperlipidaemia [Unknown]
  - Basal cell carcinoma [Unknown]
  - Arthralgia [Unknown]
  - Palpitations [Unknown]
  - Chest X-ray abnormal [Unknown]
  - Deformity [Unknown]
  - Macrocytosis [Unknown]
  - Arteriosclerosis coronary artery [Unknown]
  - Hypertension [Unknown]
  - Paraesthesia [Unknown]
  - Anaemia [Unknown]
  - Osteoarthritis [Unknown]
  - Coronary artery disease [Unknown]
